FAERS Safety Report 7476558-5 (Version None)
Quarter: 2011Q2

REPORT INFORMATION
  Report Type: 
  Country: None (occurrence: None)
  Receive Date: 20110512
  Receipt Date: 20110504
  Transmission Date: 20111010
  Serious: Yes (Hospitalization)
  Sender: FDA-Public Use
  Company Number: PHHY2011KR38254

PATIENT
  Age: 60 Year
  Sex: Female

DRUGS (1)
  1. ZOLEDRONOC ACID [Suspect]
     Indication: OSTEOPOROSIS
     Dosage: 5 MG,
     Route: 042
     Dates: start: 20101215

REACTIONS (3)
  - FALL [None]
  - FRACTURED SACRUM [None]
  - RIB FRACTURE [None]
